FAERS Safety Report 5488590-1 (Version None)
Quarter: 2007Q4

REPORT INFORMATION
  Report Type: 
  Country: None (occurrence: None)
  Receive Date: 20071017
  Receipt Date: 20070809
  Transmission Date: 20080405
  Serious: No
  Sender: FDA-Public Use
  Company Number: A0666896A

PATIENT
  Age: 77 Year
  Sex: Female

DRUGS (3)
  1. CEFTIN [Suspect]
     Dosage: 500MG TWICE PER DAY
     Route: 048
  2. CEFTIN [Suspect]
     Route: 065
  3. OSCAL [Concomitant]

REACTIONS (4)
  - DRUG INEFFECTIVE [None]
  - NAUSEA [None]
  - THROAT IRRITATION [None]
  - VOMITING [None]
